FAERS Safety Report 8588309-1 (Version None)
Quarter: 2012Q3

REPORT INFORMATION
  Report Type: 
  Country: None (occurrence: None)
  Receive Date: 20120813
  Receipt Date: 20120730
  Transmission Date: 20120928
  Serious: Yes (Death, Other)
  Sender: FDA-Public Use
  Company Number: IT-ELI_LILLY_AND_COMPANY-IT201207009319

PATIENT
  Age: 75 Year
  Sex: Female

DRUGS (5)
  1. TRAZODONE HYDROCHLORIDE [Concomitant]
     Indication: MAJOR DEPRESSION
  2. CITALOPRAM HYDROBROMIDE [Concomitant]
     Indication: MAJOR DEPRESSION
  3. DULOXETINE HYDROCHLORIDE [Suspect]
     Indication: MAJOR DEPRESSION
  4. CLONAZEPAM [Concomitant]
     Indication: MAJOR DEPRESSION
  5. MIRTAZAPINA STADA [Concomitant]
     Indication: MAJOR DEPRESSION

REACTIONS (5)
  - IMMOBILISATION PROLONGED [None]
  - PULMONARY EMBOLISM [None]
  - COMPLETED SUICIDE [None]
  - OVERDOSE [None]
  - CARDIO-RESPIRATORY ARREST [None]
